FAERS Safety Report 6108086-3 (Version None)
Quarter: 2009Q1

REPORT INFORMATION
  Report Type: 
  Country: None (occurrence: None)
  Receive Date: 20090309
  Receipt Date: 20090223
  Transmission Date: 20090719
  Serious: Yes (Other)
  Sender: FDA-Public Use
  Company Number: IR-ROCHE-616150

PATIENT
  Age: 52 Year
  Sex: Female

DRUGS (2)
  1. PEG-INTERFERON ALFA 2A (RO 25-8310) [Suspect]
     Route: 058
     Dates: start: 20090101, end: 20090201
  2. RIBAVIRIN [Suspect]
     Route: 048
     Dates: start: 20090101, end: 20090201

REACTIONS (3)
  - BACK PAIN [None]
  - METRORRHAGIA [None]
  - PLATELET COUNT DECREASED [None]
